FAERS Safety Report 14087732 (Version 5)
Quarter: 2019Q4

REPORT INFORMATION
  Report Type: Report from Study
  Country: US (occurrence: CA)
  Receive Date: 20171013
  Receipt Date: 20191101
  Transmission Date: 20200122
  Serious: Yes (Hospitalization, Other)
  Sender: FDA-Public Use
  Company Number: US-SUNOVION-2014000646

PATIENT
  Age: 63 Year
  Sex: Female

DRUGS (10)
  1. XOLAIR [Suspect]
     Active Substance: OMALIZUMAB
     Dosage: 375 MG, BIW
     Route: 058
     Dates: start: 20100604
  2. XOLAIR [Suspect]
     Active Substance: OMALIZUMAB
     Dosage: UNK
     Route: 058
  3. PREDNISONE. [Concomitant]
     Active Substance: PREDNISONE
     Indication: PRODUCT USED FOR UNKNOWN INDICATION
     Route: 065
  4. REACTINE                                /CAN/ [Concomitant]
     Indication: PRODUCT USED FOR UNKNOWN INDICATION
     Route: 065
  5. VENTOLIN [Concomitant]
     Active Substance: ALBUTEROL SULFATE
     Indication: PRODUCT USED FOR UNKNOWN INDICATION
     Route: 065
  6. XOLAIR [Suspect]
     Active Substance: OMALIZUMAB
     Indication: ASTHMA
     Dosage: 2 DF (EQUIVALENT TO 300 MG)
     Route: 058
     Dates: start: 20160808
  7. ALVESCO [Concomitant]
     Active Substance: CICLESONIDE
     Indication: PRODUCT USED FOR UNKNOWN INDICATION
     Route: 065
  8. GLYCOPYRROLATE. [Suspect]
     Active Substance: GLYCOPYRROLATE
     Indication: PULMONARY FIBROSIS
     Dosage: UNKNOWN
     Route: 065
  9. ENBREL [Suspect]
     Active Substance: ETANERCEPT
     Indication: ARTHRITIS
     Dosage: QW
     Route: 065
     Dates: start: 2013
  10. SYMBICORT [Concomitant]
     Active Substance: BUDESONIDE\FORMOTEROL FUMARATE DIHYDRATE
     Indication: PRODUCT USED FOR UNKNOWN INDICATION
     Route: 065

REACTIONS (47)
  - Cerebral haemorrhage [Unknown]
  - Bradycardia [Unknown]
  - Oesophageal rupture [Unknown]
  - Hypersensitivity [Unknown]
  - Rhinorrhoea [Unknown]
  - Nasopharyngitis [Unknown]
  - Product preparation error [Unknown]
  - Wheezing [Recovered/Resolved]
  - Fatigue [Unknown]
  - Skin cancer [Unknown]
  - Arthritis [Unknown]
  - Mobility decreased [Unknown]
  - Allergy to animal [Unknown]
  - Fall [Unknown]
  - Pulmonary haemorrhage [Unknown]
  - Pulmonary infarction [Unknown]
  - Concomitant disease aggravated [Unknown]
  - Asthma [Recovered/Resolved]
  - Wheezing [Unknown]
  - Forced expiratory volume decreased [Unknown]
  - Coma [Unknown]
  - Secretion discharge [Unknown]
  - Pain [Unknown]
  - Cough [Recovered/Resolved]
  - Atelectasis [Unknown]
  - Haematuria [Unknown]
  - Pulmonary fibrosis [Unknown]
  - Pneumonia [Unknown]
  - Nephrolithiasis [Unknown]
  - Lacrimation increased [Unknown]
  - Vomiting [Unknown]
  - Sleep apnoea syndrome [Unknown]
  - Product use in unapproved indication [Unknown]
  - Cataract operation complication [Unknown]
  - Pneumonia [Unknown]
  - Incorrect product dosage form administered [Unknown]
  - Asthma [Unknown]
  - Cataract [Unknown]
  - Pneumonia viral [Unknown]
  - Pulmonary hypertension [Unknown]
  - Dyspnoea [Recovered/Resolved]
  - Fracture [Unknown]
  - Septic shock [Unknown]
  - Oral candidiasis [Unknown]
  - Contusion [Unknown]
  - Restrictive pulmonary disease [Unknown]
  - Food intolerance [Unknown]

NARRATIVE: CASE EVENT DATE: 201311
